FAERS Safety Report 24867618 (Version 1)
Quarter: 2025Q1

REPORT INFORMATION
  Report Type: Spontaneous
  Country: US (occurrence: None)
  Receive Date: 20250120
  Receipt Date: 20250120
  Transmission Date: 20250409
  Serious: No
  Sender: FDA-CTU
  Company Number: None

PATIENT
  Age: 9 Year
  Sex: Female
  Weight: 25.7 kg

DRUGS (3)
  1. DEFERASIROX [Suspect]
     Active Substance: DEFERASIROX
     Indication: Haemochromatosis
     Dosage: 500 MG DAILY ORAL
     Route: 048
     Dates: start: 20240404, end: 20250106
  2. Deferasirox Tablet Susp [Concomitant]
     Dosage: FREQUENCY : DAILY;?
     Route: 048
  3. Deferasirox Tablet Susp [Concomitant]

REACTIONS (1)
  - Hepatic enzyme abnormal [None]

NARRATIVE: CASE EVENT DATE: 20240106
